FAERS Safety Report 4976267-8 (Version None)
Quarter: 2006Q2

REPORT INFORMATION
  Report Type: 
  Country: None (occurrence: None)
  Receive Date: 20060412
  Receipt Date: 20060328
  Transmission Date: 20061013
  Serious: Yes (Hospitalization)
  Sender: FDA-Public Use
  Company Number: 2006P1000178

PATIENT
  Age: 65 Year
  Sex: Male
  Weight: 80 kg

DRUGS (5)
  1. RETEPLASE (RETEPLASE) [Suspect]
     Indication: ACUTE MYOCARDIAL INFARCTION
     Dosage: SEE IMAGE
     Route: 040
     Dates: start: 20050509, end: 20050509
  2. RETEPLASE (RETEPLASE) [Suspect]
     Indication: ACUTE MYOCARDIAL INFARCTION
     Dosage: SEE IMAGE
     Route: 040
     Dates: start: 20050509, end: 20050509
  3. REOPRO [Suspect]
     Indication: ACUTE MYOCARDIAL INFARCTION
     Dosage: SEE IMAGE
     Route: 040
     Dates: start: 20050509, end: 20050509
  4. REOPRO [Suspect]
     Indication: ACUTE MYOCARDIAL INFARCTION
     Dosage: SEE IMAGE
     Route: 040
     Dates: start: 20050509, end: 20050509
  5. HEPARIN [Concomitant]

REACTIONS (2)
  - CORONARY ARTERY DISEASE [None]
  - INJECTION SITE HAEMATOMA [None]
